FAERS Safety Report 6438480-2 (Version None)
Quarter: 2009Q4

REPORT INFORMATION
  Report Type: 
  Country: None (occurrence: None)
  Receive Date: 20091112
  Receipt Date: 20091106
  Transmission Date: 20100525
  Serious: Yes (Other)
  Sender: FDA-Public Use
  Company Number: US-GENENTECH-287669

PATIENT
  Sex: Female

DRUGS (9)
  1. XOLAIR [Suspect]
     Indication: ASTHMA
     Dosage: 300 MG, Q4W
     Dates: start: 20050501, end: 20090424
  2. ADVAIR DISKUS 100/50 [Concomitant]
     Indication: ASTHMA
     Dosage: UNK
     Route: 055
     Dates: start: 20090301
  3. PROVENTIL-HFA [Concomitant]
     Indication: ASTHMA
     Dosage: UNK
     Route: 055
  4. VERAMYST [Concomitant]
     Indication: RHINITIS
     Dosage: 2 UNK, QD
     Route: 045
     Dates: start: 20080101
  5. SYNTHROID [Concomitant]
     Indication: HYPOTHYROIDISM
     Dosage: 0.2 MG, UNK
     Route: 048
  6. CARDIZEM [Concomitant]
     Indication: HYPERTENSION
     Dosage: 210 MG, UNK
  7. ESTRADIOL [Concomitant]
     Indication: POSTMENOPAUSE
     Dosage: UNK
     Route: 048
  8. PROMETRIUM [Concomitant]
     Indication: POSTMENOPAUSE
     Dosage: UNK
     Route: 048
  9. ALBUTEROL/ALBUTEROL SULFATE/IPRATROPIUM BROMI [Concomitant]
     Indication: ASTHMA
     Dosage: UNK
     Route: 055

REACTIONS (8)
  - ANXIETY [None]
  - BLOOD PRESSURE INCREASED [None]
  - DYSPNOEA [None]
  - FLUSHING [None]
  - HYPERSENSITIVITY [None]
  - PALPITATIONS [None]
  - SENSATION OF FOREIGN BODY [None]
  - THROAT TIGHTNESS [None]
